FAERS Safety Report 23111548 (Version 1)
Quarter: 2023Q4

REPORT INFORMATION
  Report Type: Report from Study
  Country: DE (occurrence: DE)
  Receive Date: 20231026
  Receipt Date: 20231026
  Transmission Date: 20240110
  Serious: Yes (Life-Threatening)
  Sender: FDA-Public Use
  Company Number: None

PATIENT
  Age: 69 Year
  Sex: Male
  Weight: 93 kg

DRUGS (37)
  1. DEXAMETHASONE [Suspect]
     Active Substance: DEXAMETHASONE
     Indication: Prophylaxis
     Dates: start: 19970416, end: 19970416
  2. DEXAMETHASONE [Suspect]
     Active Substance: DEXAMETHASONE
     Route: 048
     Dates: start: 19970419, end: 19970426
  3. PHENYTOIN [Suspect]
     Active Substance: PHENYTOIN
     Indication: Seizure prophylaxis
     Route: 048
     Dates: start: 19970403, end: 19970426
  4. GENTAMICIN SULFATE [Suspect]
     Active Substance: GENTAMICIN SULFATE
     Indication: Eye disorder
     Route: 047
     Dates: start: 19970407, end: 19970421
  5. CLORAZEPATE DIPOTASSIUM [Suspect]
     Active Substance: CLORAZEPATE DIPOTASSIUM
     Indication: Sedative therapy
     Route: 048
     Dates: start: 19970416, end: 19970417
  6. ACETYLCYSTEINE [Suspect]
     Active Substance: ACETYLCYSTEINE
     Indication: Nasopharyngitis
     Route: 048
     Dates: start: 19970416, end: 19970422
  7. FAMOTIDINE [Suspect]
     Active Substance: FAMOTIDINE
     Indication: Prophylaxis
     Route: 042
     Dates: start: 19970426, end: 19970426
  8. FAMOTIDINE [Suspect]
     Active Substance: FAMOTIDINE
     Indication: Prophylaxis
     Route: 042
     Dates: start: 19970417, end: 19970417
  9. HEPARIN SODIUM [Suspect]
     Active Substance: HEPARIN SODIUM
     Indication: Thrombosis prophylaxis
     Route: 058
     Dates: start: 19970417
  10. CARBAMAZEPINE [Suspect]
     Active Substance: CARBAMAZEPINE
     Indication: Seizure prophylaxis
     Route: 048
     Dates: start: 19970424, end: 19970426
  11. ACTRAPID [Suspect]
     Active Substance: INSULIN HUMAN
     Indication: Diabetes mellitus
     Route: 042
     Dates: start: 19970417, end: 19970418
  12. DICLOFENAC [Suspect]
     Active Substance: DICLOFENAC
     Indication: Pain
     Route: 048
     Dates: end: 19970422
  13. ISOSORBIDE DINITRATE [Suspect]
     Active Substance: ISOSORBIDE DINITRATE
     Indication: Coronary artery disease
     Route: 048
     Dates: start: 19970405
  14. CEFAZOLIN SODIUM [Suspect]
     Active Substance: CEFAZOLIN SODIUM
     Indication: Infection prophylaxis
     Route: 042
     Dates: start: 19970416, end: 19970419
  15. CEFAZOLIN SODIUM [Suspect]
     Active Substance: CEFAZOLIN SODIUM
     Route: 042
     Dates: start: 19970416, end: 19970419
  16. PHENYTOIN [Suspect]
     Active Substance: PHENYTOIN
     Indication: Seizure prophylaxis
     Route: 042
     Dates: start: 19970426, end: 19970426
  17. PHENYTOIN [Suspect]
     Active Substance: PHENYTOIN
     Indication: Seizure prophylaxis
     Route: 042
     Dates: start: 19970417, end: 19970417
  18. URAPIDIL [Suspect]
     Active Substance: URAPIDIL
     Indication: Hypertension
     Route: 042
     Dates: start: 19970417, end: 19970418
  19. FLUIMUCIL [Suspect]
     Active Substance: ACETYLCYSTEINE
     Indication: Nasopharyngitis
     Route: 048
     Dates: start: 19970408, end: 19970415
  20. FLUIMUCIL [Suspect]
     Active Substance: ACETYLCYSTEINE
     Route: 042
     Dates: start: 19970417, end: 19970418
  21. ADALAT [Suspect]
     Active Substance: NIFEDIPINE
     Indication: Coronary artery disease
     Route: 048
     Dates: start: 19970405
  22. ADALAT [Suspect]
     Active Substance: NIFEDIPINE
     Route: 042
     Dates: start: 19970417, end: 19970417
  23. RINGER-LACTAT [Concomitant]
     Indication: Fluid replacement
     Route: 042
     Dates: start: 19970418, end: 19970419
  24. DIMETHINDENE [Concomitant]
     Active Substance: DIMETHINDENE
     Indication: Pruritus
     Route: 048
     Dates: start: 19970404, end: 19970420
  25. TRAPIDIL [Concomitant]
     Active Substance: TRAPIDIL
     Indication: Coronary artery disease
     Route: 048
  26. RINGER^S INJECTION [Concomitant]
     Indication: Fluid replacement
     Route: 042
     Dates: start: 19970417, end: 19970417
  27. ADALAT [Concomitant]
     Active Substance: NIFEDIPINE
     Indication: Coronary artery disease
     Dosage: 10MG,TID
     Route: 048
     Dates: end: 19970404
  28. ADALAT [Concomitant]
     Active Substance: NIFEDIPINE
     Indication: Coronary artery disease
  29. ADALAT [Concomitant]
     Active Substance: NIFEDIPINE
     Indication: Coronary artery disease
  30. INSULIN NOS [Concomitant]
     Active Substance: INSULIN NOS
     Indication: Diabetes mellitus
     Route: 058
     Dates: start: 19970417
  31. TRIAMCINOLONE [Concomitant]
     Active Substance: TRIAMCINOLONE
     Indication: Folliculitis
     Route: 061
     Dates: start: 19970425
  32. DEXAMETHASONE [Concomitant]
     Active Substance: DEXAMETHASONE
     Indication: Prophylaxis
     Route: 048
     Dates: end: 19970415
  33. DEXAMETHASONE [Concomitant]
     Active Substance: DEXAMETHASONE
     Indication: Prophylaxis
     Route: 042
     Dates: start: 19970417, end: 19970418
  34. POTASSIUM CHLORIDE [Concomitant]
     Active Substance: POTASSIUM CHLORIDE
     Indication: Hypokalaemia
     Route: 042
     Dates: start: 19970417, end: 19970419
  35. TENORMIN [Concomitant]
     Active Substance: ATENOLOL
     Indication: Cardiac disorder
     Route: 048
  36. CHLORHEXIDINE [Concomitant]
     Active Substance: CHLORHEXIDINE\CHLORHEXIDINE GLUCONATE
     Indication: Stomatitis
     Route: 002
     Dates: start: 19970425
  37. DEXTROSE [Concomitant]
     Active Substance: DEXTROSE\DEXTROSE MONOHYDRATE
     Indication: Electrolyte substitution therapy
     Route: 042
     Dates: start: 19970418, end: 19970418

REACTIONS (4)
  - Stevens-Johnson syndrome [Recovered/Resolved]
  - Pyrexia [Unknown]
  - Conjunctivitis [Unknown]
  - Toxic epidermal necrolysis [Unknown]

NARRATIVE: CASE EVENT DATE: 19970425
